FAERS Safety Report 17810692 (Version 1)
Quarter: 2020Q2

REPORT INFORMATION
  Report Type: Spontaneous
  Country: US (occurrence: US)
  Receive Date: 20200520
  Receipt Date: 20200520
  Transmission Date: 20200714
  Serious: Yes (Hospitalization)
  Sender: FDA-Public Use
  Company Number: None

PATIENT
  Age: 73 Year
  Sex: Male
  Weight: 89.9 kg

DRUGS (3)
  1. IPILIMUMAB, 1MG/KG [Suspect]
     Active Substance: IPILIMUMAB
     Indication: GLIOBLASTOMA MULTIFORME
     Route: 042
     Dates: start: 20200304, end: 20200326
  2. NIVOLUMAB [Concomitant]
     Active Substance: NIVOLUMAB
  3. BEVACIZUMAB, 15MG/KG [Suspect]
     Active Substance: BEVACIZUMAB
     Indication: GLIOBLASTOMA MULTIFORME
     Route: 042
     Dates: start: 20200304

REACTIONS (6)
  - Hemiparesis [None]
  - Irritability [None]
  - Confusional state [None]
  - Aspartate aminotransferase increased [None]
  - Asthenia [None]
  - Alanine aminotransferase increased [None]

NARRATIVE: CASE EVENT DATE: 20200507
